FAERS Safety Report 13510908 (Version 2)
Quarter: 2017Q2

REPORT INFORMATION
  Report Type: Spontaneous
  Country: SE (occurrence: SE)
  Receive Date: 20170503
  Receipt Date: 20170512
  Transmission Date: 20170830
  Serious: Yes (Hospitalization)
  Sender: FDA-Public Use
  Company Number: SE-PFIZER INC-2017194592

PATIENT
  Age: 34 Year
  Sex: Male

DRUGS (5)
  1. MORPHINE SULFATE. [Suspect]
     Active Substance: MORPHINE SULFATE
     Dosage: 30 MG, SINGLE (3 PIECES OF MORPHINE 10MG)
     Route: 048
     Dates: start: 20150131, end: 20150131
  2. ALVEDON [Suspect]
     Active Substance: ACETAMINOPHEN
     Dosage: 9975 MG, SINGLE (15 X 665 MG)
     Route: 048
     Dates: start: 20150131, end: 20150131
  3. TARGINIQ ER [Suspect]
     Active Substance: NALOXONE HYDROCHLORIDE\OXYCODONE HYDROCHLORIDE
     Dosage: 24 DF, SINGLE (24 PIECES)
     Route: 048
     Dates: start: 20150131, end: 20150131
  4. OMEPRAZOL PENSA /00661201/ [Concomitant]
     Active Substance: OMEPRAZOLE
     Dosage: UNK
  5. SERTRALIN TEVA [Concomitant]
     Dosage: UNK

REACTIONS (3)
  - Fatigue [Recovered/Resolved]
  - Suicide attempt [Recovered/Resolved]
  - Toxicity to various agents [Recovered/Resolved]

NARRATIVE: CASE EVENT DATE: 20150131
